FAERS Safety Report 5875660-9 (Version None)
Quarter: 2008Q3

REPORT INFORMATION
  Report Type: 
  Country: None (occurrence: None)
  Receive Date: 20080904
  Receipt Date: 20080825
  Transmission Date: 20090109
  Serious: Yes (Death, Hospitalization)
  Sender: FDA-Public Use
  Company Number: 2008AL004476

PATIENT
  Age: 49 Year
  Sex: Male
  Weight: 181.4388 kg

DRUGS (12)
  1. DIGOXIN [Suspect]
     Indication: CARDIAC FAILURE CONGESTIVE
     Dosage: 0.125MG DAILY PO
     Route: 048
  2. LANOXIN [Concomitant]
  3. ALLOPURINOL [Concomitant]
  4. PACERONE [Concomitant]
  5. COLACE [Concomitant]
  6. GLYBURIDE [Concomitant]
  7. SYNTHROID [Concomitant]
  8. LEXAPRO [Concomitant]
  9. BUMEX METOLAZONE [Concomitant]
  10. K-DUR [Concomitant]
  11. DESYREL [Concomitant]
  12. COUMADIN [Concomitant]

REACTIONS (9)
  - ACUTE MYOCARDIAL INFARCTION [None]
  - ARTERIOSCLEROSIS CORONARY ARTERY [None]
  - CARDIAC FAILURE CONGESTIVE [None]
  - CELLULITIS [None]
  - CONFUSIONAL STATE [None]
  - HYPOKALAEMIA [None]
  - LETHARGY [None]
  - RENAL FAILURE ACUTE [None]
  - STREPTOCOCCAL SEPSIS [None]
